FAERS Safety Report 10515787 (Version 1)
Quarter: 2014Q4

REPORT INFORMATION
  Report Type: Spontaneous
  Country: US (occurrence: None)
  Receive Date: 20141001
  Receipt Date: 20141001
  Transmission Date: 20150528
  Serious: Yes (Hospitalization)
  Sender: FDA-Public Use
  Company Number: 121573

PATIENT
  Age: 31 Year
  Sex: Female

DRUGS (2)
  1. VIMPAT [Suspect]
     Active Substance: LACOSAMIDE
  2. KEPPRA [Suspect]
     Active Substance: LEVETIRACETAM

REACTIONS (2)
  - Pregnancy [None]
  - Seizure [None]

NARRATIVE: CASE EVENT DATE: 2014
